FAERS Safety Report 5963251-0 (Version None)
Quarter: 2008Q4

REPORT INFORMATION
  Report Type: 
  Country: None (occurrence: None)
  Receive Date: 20081124
  Receipt Date: 20080612
  Transmission Date: 20090506
  Serious: Yes (Death, Hospitalization, Other)
  Sender: FDA-Public Use
  Company Number: FR-ROCHE-596875

PATIENT
  Sex: Female
  Weight: 39 kg

DRUGS (8)
  1. MYCOPHENOLATE MOFETIL [Suspect]
     Indication: HEPATITIS C POSITIVE
     Route: 048
     Dates: start: 20070314
  2. MYCOPHENOLATE MOFETIL [Suspect]
     Dosage: DECREASED FOR NORMALISATION OF NEUTROPHILS FOR 48 HOURS
     Route: 048
  3. MYCOPHENOLATE MOFETIL [Suspect]
     Dosage: RECEIVED AFTER NORMALISATION OF NEUTROPHILS
     Route: 048
     Dates: end: 20080116
  4. TACROLIMUS [Suspect]
     Indication: HEPATITIS C POSITIVE
     Route: 048
     Dates: start: 20070314
  5. TACROLIMUS [Suspect]
     Route: 048
     Dates: end: 20080116
  6. MOPRAL [Concomitant]
     Dosage: DRUG NAME: MOPRAL 20
     Dates: end: 20080116
  7. DUPHALAC [Concomitant]
     Dosage: FREQUENCY: IF REQUIRED.
     Dates: end: 20080116
  8. MOTILIUM [Concomitant]
     Dates: end: 20080116

REACTIONS (8)
  - ACUTE PULMONARY OEDEMA [None]
  - CHOLANGITIS [None]
  - CHOLESTASIS [None]
  - GRAND MAL CONVULSION [None]
  - HAEMOTHORAX [None]
  - PLEURAL EFFUSION [None]
  - SEPTIC SHOCK [None]
  - SHOCK HAEMORRHAGIC [None]
